FAERS Safety Report 14840795 (Version 2)
Quarter: 2018Q2

REPORT INFORMATION
  Report Type: Spontaneous
  Country: US (occurrence: US)
  Receive Date: 20180503
  Receipt Date: 20180507
  Transmission Date: 20180711
  Serious: No
  Sender: FDA-Public Use
  Company Number: US-PFIZER INC-2018174369

PATIENT
  Sex: Male

DRUGS (2)
  1. TIKOSYN [Suspect]
     Active Substance: DOFETILIDE
     Dosage: UNK
  2. LIDOCAINE. [Interacting]
     Active Substance: LIDOCAINE
     Dosage: UNK
     Route: 061

REACTIONS (2)
  - Palpitations [Unknown]
  - Drug interaction [Unknown]
